FAERS Safety Report 4860381-1 (Version None)
Quarter: 2005Q4

REPORT INFORMATION
  Report Type: 
  Country: None (occurrence: None)
  Receive Date: 20051215
  Receipt Date: 20051208
  Transmission Date: 20060501
  Serious: Yes (Hospitalization)
  Sender: FDA-Public Use
  Company Number: US-2005-007297

PATIENT
  Age: 25 Year
  Sex: Female
  Weight: 81.6 kg

DRUGS (1)
  1. MIRENA [Suspect]
     Indication: CONTRACEPTION
     Dosage: 20 UG/DAY, CONT, INTRA-UTERINE
     Route: 015
     Dates: start: 20050112, end: 20050502

REACTIONS (9)
  - BLOOD CREATININE INCREASED [None]
  - DEHYDRATION [None]
  - GASTROENTERITIS VIRAL [None]
  - HYPOKALAEMIA [None]
  - IUD MIGRATION [None]
  - MUSCLE SPASMS [None]
  - PAIN [None]
  - UPPER RESPIRATORY TRACT INFECTION [None]
  - UTERINE PERFORATION [None]
